FAERS Safety Report 7346300-7 (Version None)
Quarter: 2011Q1

REPORT INFORMATION
  Report Type: 
  Country: None (occurrence: None)
  Receive Date: 20110228
  Receipt Date: 20110217
  Transmission Date: 20110831
  Serious: Yes (Other)
  Sender: FDA-Public Use
  Company Number: CVBU2002IT00496

PATIENT
  Age: 69 Year
  Sex: Male

DRUGS (1)
  1. VISUDYNE [Suspect]
     Indication: NEOVASCULARISATION
     Dosage: 6 MG/M^2 ONCE IV
     Route: 042

REACTIONS (1)
  - RETINAL PIGMENT EPITHELIAL TEAR [None]
